FAERS Safety Report 12264118 (Version 1)
Quarter: 2016Q2

REPORT INFORMATION
  Report Type: Spontaneous
  Country: US (occurrence: US)
  Receive Date: 20160413
  Receipt Date: 20160413
  Transmission Date: 20160815
  Serious: No
  Sender: FDA-Public Use
  Company Number: US-JNJFOC-20160318776

PATIENT
  Age: 9 Year
  Sex: Male
  Weight: 29.48 kg

DRUGS (2)
  1. CHILDRENS MOTRIN [Suspect]
     Active Substance: IBUPROFEN
     Route: 048
  2. CHILDRENS MOTRIN [Suspect]
     Active Substance: IBUPROFEN
     Indication: MIGRAINE
     Dosage: WHEN NEEDED
     Route: 048

REACTIONS (6)
  - Therapeutic response unexpected [Recovered/Resolved]
  - Off label use [Recovered/Resolved]
  - Disturbance in social behaviour [Recovered/Resolved]
  - Product use issue [Recovered/Resolved]
  - Psychomotor hyperactivity [Recovered/Resolved]
  - Reaction to drug excipients [Recovered/Resolved]
